FAERS Safety Report 9033543 (Version 1)
Quarter: 2013Q1

REPORT INFORMATION
  Report Type: Spontaneous
  Country: US (occurrence: US)
  Receive Date: 20130128
  Receipt Date: 20130128
  Transmission Date: 20140127
  Serious: No
  Sender: FDA-Public Use
  Company Number: US-MYLANLABS-2012S1021647

PATIENT
  Sex: Female

DRUGS (4)
  1. BUPROPION HYDROCHLORIDE EXTENDED RELEASE (XL) [Suspect]
     Indication: GRIEF REACTION
     Route: 048
  2. BUPROPION HYDROCHLORIDE EXTENDED RELEASE (XL) [Suspect]
     Indication: OFF LABEL USE
     Route: 048
  3. BUPROPION HYDROCHLORIDE EXTENDED RELEASE (XL) [Suspect]
     Indication: GRIEF REACTION
     Route: 048
  4. BUPROPION HYDROCHLORIDE EXTENDED RELEASE (XL) [Suspect]
     Indication: OFF LABEL USE
     Route: 048

REACTIONS (2)
  - Drug ineffective for unapproved indication [Not Recovered/Not Resolved]
  - Grief reaction [Not Recovered/Not Resolved]
